FAERS Safety Report 23919467 (Version 1)
Quarter: 2024Q2

REPORT INFORMATION
  Report Type: Spontaneous
  Country: AR (occurrence: AR)
  Receive Date: 20240530
  Receipt Date: 20240530
  Transmission Date: 20240716
  Serious: Yes (Other)
  Sender: FDA-Public Use
  Company Number: AR-PFIZER INC-PV202400036635

PATIENT
  Age: 71 Year
  Sex: Female

DRUGS (2)
  1. IBRANCE [Suspect]
     Active Substance: PALBOCICLIB
     Indication: Breast cancer metastatic
     Dosage: 125 MG, CYCLIC: SCHEME 3X1
     Dates: start: 20180320, end: 20240111
  2. LETROZOLE [Suspect]
     Active Substance: LETROZOLE

REACTIONS (4)
  - Blood urea increased [Unknown]
  - Anaemia [Unknown]
  - Urea urine decreased [Not Recovered/Not Resolved]
  - Renal disorder [Not Recovered/Not Resolved]
